FAERS Safety Report 22135258 (Version 1)
Quarter: 2023Q1

REPORT INFORMATION
  Report Type: Spontaneous
  Country: US (occurrence: US)
  Receive Date: 20230324
  Receipt Date: 20230324
  Transmission Date: 20230418
  Serious: No
  Sender: FDA-Public Use
  Company Number: US-SA-SAC20230323000125

PATIENT
  Sex: Male

DRUGS (3)
  1. DUPIXENT [Suspect]
     Active Substance: DUPILUMAB
     Indication: Dermatitis atopic
     Dosage: 300 MG, QOW
     Route: 058
     Dates: start: 201908
  2. TACROLIMUS [Concomitant]
     Active Substance: TACROLIMUS
  3. VITAMIN D3 [Concomitant]
     Active Substance: CHOLECALCIFEROL

REACTIONS (4)
  - Dry skin [Not Recovered/Not Resolved]
  - Myopia [Unknown]
  - Visual impairment [Not Recovered/Not Resolved]
  - Pruritus [Not Recovered/Not Resolved]
